FAERS Safety Report 10193324 (Version 1)
Quarter: 2014Q2

REPORT INFORMATION
  Report Type: Spontaneous
  Country: US (occurrence: US)
  Receive Date: 20140524
  Receipt Date: 20140524
  Transmission Date: 20141212
  Serious: No
  Sender: FDA-Public Use
  Company Number: US-SA-2013SA121991

PATIENT
  Age: 67 Year
  Sex: Male
  Weight: 122.46 kg

DRUGS (3)
  1. LANTUS SOLOSTAR [Suspect]
     Indication: TYPE 2 DIABETES MELLITUS
     Dosage: DOSE:10 UNIT(S)
     Route: 051
     Dates: start: 20130604
  2. WARFARIN [Suspect]
  3. SOLOSTAR [Concomitant]

REACTIONS (3)
  - Prothrombin time prolonged [Unknown]
  - Blood glucose increased [Unknown]
  - Injection site haemorrhage [Unknown]
